FAERS Safety Report 9149746 (Version 1)
Quarter: 2013Q1

REPORT INFORMATION
  Report Type: Spontaneous
  Country: BR (occurrence: None)
  Receive Date: 20130131
  Receipt Date: 20130131
  Transmission Date: 20140127
  Serious: Yes (Other)
  Sender: FDA-Public Use
  Company Number: DSI-2013-00659

PATIENT
  Age: 71 Year
  Sex: Male

DRUGS (1)
  1. OLMETEC [Suspect]
     Indication: HYPERTENSION
     Dosage: 40 MG (40 MG, QD), PER ORAL
     Route: 048
     Dates: start: 20121213, end: 201212

REACTIONS (6)
  - Drug ineffective [None]
  - Blood pressure increased [None]
  - Feeling abnormal [None]
  - Fatigue [None]
  - Neoplasm malignant [None]
  - Diabetes mellitus [None]
